FAERS Safety Report 7135383-5 (Version None)
Quarter: 2010Q4

REPORT INFORMATION
  Report Type: 
  Country: None (occurrence: None)
  Receive Date: 20101203
  Receipt Date: 20101124
  Transmission Date: 20110411
  Serious: Yes (Other)
  Sender: FDA-Public Use
  Company Number: SE-JNJFOC-20100703169

PATIENT
  Age: 54 Year
  Sex: Female

DRUGS (11)
  1. REMICADE [Suspect]
     Indication: RHEUMATOID ARTHRITIS
     Route: 042
  2. METHOTREXATE [Suspect]
     Indication: RHEUMATOID ARTHRITIS
     Route: 048
  3. LEVOTHYROXINE SODIUM [Concomitant]
  4. FOLACIN [Concomitant]
  5. ALVEDON [Concomitant]
  6. IBRUPROFEN [Concomitant]
  7. TROMBYL [Concomitant]
  8. VISCOTEARS [Concomitant]
  9. CALCICHEW D3 [Concomitant]
  10. OMEPRAZOLE [Concomitant]
  11. ENALAPRIL MALEATE [Concomitant]

REACTIONS (2)
  - HYPOAESTHESIA [None]
  - MYELITIS [None]
